FAERS Safety Report 24073028 (Version 1)
Quarter: 2024Q3

REPORT INFORMATION
  Report Type: Spontaneous
  Country: ET (occurrence: ET)
  Receive Date: 20240710
  Receipt Date: 20240710
  Transmission Date: 20241016
  Serious: Yes (Death, Other)
  Sender: ACCORD
  Company Number: ET-Accord-433914

PATIENT
  Age: 18 Year
  Sex: Female

DRUGS (3)
  1. CISPLATIN [Suspect]
     Active Substance: CISPLATIN
     Indication: Extragonadal primary germ cell tumour
  2. PACLITAXEL [Suspect]
     Active Substance: PACLITAXEL
     Indication: Extragonadal primary germ cell tumour
  3. IFOSFAMIDE [Suspect]
     Active Substance: IFOSFAMIDE
     Indication: Extragonadal primary germ cell tumour

REACTIONS (3)
  - Hydronephrosis [Fatal]
  - Anaemia [Fatal]
  - Sepsis [Fatal]
